FAERS Safety Report 9806305 (Version 2)
Quarter: 2014Q1

REPORT INFORMATION
  Report Type: Spontaneous
  Country: US (occurrence: US)
  Receive Date: 20140109
  Receipt Date: 20140326
  Transmission Date: 20141002
  Serious: Yes (Death, Other)
  Sender: FDA-Public Use
  Company Number: PHEH2014US000614

PATIENT
  Age: 86 Year
  Sex: Male
  Weight: 67.57 kg

DRUGS (11)
  1. EXELON PATCH [Suspect]
     Dosage: 9.5 MG, QD
     Route: 062
     Dates: start: 20121221
  2. OMEPRAZOLE [Concomitant]
     Dosage: 1 DF (40 MG), ONCE A DAY
     Route: 048
     Dates: start: 20130719
  3. WARFARIN [Concomitant]
     Dosage: 1 DF (4 MG), QD
     Route: 048
     Dates: start: 20070206
  4. LANOXIN [Concomitant]
     Dosage: 1 DF (0.250 MG), QD
     Route: 048
     Dates: start: 20110523
  5. CRESTOR [Concomitant]
     Dosage: 1 DF (5 MG), QOD
     Route: 048
     Dates: start: 20130930
  6. ZOFRAN [Concomitant]
     Indication: NAUSEA
     Dosage: 1 DF (4 MG), Q8H
     Route: 048
     Dates: start: 20131023
  7. NAMENDA [Concomitant]
     Dosage: 1 DF (10 MG), QD
     Route: 048
     Dates: start: 20130719
  8. CARDIZEM CD [Concomitant]
     Dosage: 1 DF (180 MG), QD
     Route: 048
     Dates: start: 20121102
  9. TRICOR [Concomitant]
     Dosage: 1 DF (145 MG), QD
     Route: 048
     Dates: start: 20130225
  10. MULTIVITAMIN                       /00097801/ [Concomitant]
     Dosage: UNK UKN, ONCE A DAY
     Route: 048
     Dates: start: 20130719
  11. LISINOPRIL/HCTZ [Concomitant]
     Dosage: 1 DF (20/12.5 MG), QD
     Route: 048
     Dates: start: 20120216

REACTIONS (3)
  - Death [Fatal]
  - Vomiting [Unknown]
  - Abdominal pain [Unknown]
